FAERS Safety Report 6347398-5 (Version None)
Quarter: 2009Q3

REPORT INFORMATION
  Report Type: 
  Country: None (occurrence: None)
  Receive Date: 20090910
  Receipt Date: 20090831
  Transmission Date: 20100115
  Serious: Yes (Other)
  Sender: FDA-Public Use
  Company Number: US-JNJFOC-20090900391

PATIENT
  Sex: Female
  Weight: 68.04 kg

DRUGS (7)
  1. REMICADE [Suspect]
     Route: 042
  2. REMICADE [Suspect]
     Indication: RHEUMATOID ARTHRITIS
     Route: 042
  3. AVALIDE [Concomitant]
     Indication: HYPOTHYROIDISM
  4. SYNTHROID [Concomitant]
     Indication: HYPOTHYROIDISM
  5. METHOTREXATE [Concomitant]
     Indication: RHEUMATOID ARTHRITIS
  6. EFFEXOR [Concomitant]
     Indication: FIBROMYALGIA
  7. EVISTA [Concomitant]
     Indication: HYPOTHYROIDISM

REACTIONS (4)
  - BALANCE DISORDER [None]
  - FEELING ABNORMAL [None]
  - INSOMNIA [None]
  - PAIN [None]
